FAERS Safety Report 13001250 (Version 1)
Quarter: 2016Q4

REPORT INFORMATION
  Report Type: Spontaneous
  Country: US (occurrence: US)
  Receive Date: 20161206
  Receipt Date: 20161206
  Transmission Date: 20170207
  Serious: No
  Sender: FDA-Public Use
  Company Number: US-PFIZER INC-2016557516

PATIENT
  Sex: Female

DRUGS (1)
  1. XELJANZ XR [Suspect]
     Active Substance: TOFACITINIB CITRATE
     Dosage: UNK

REACTIONS (8)
  - Hypoaesthesia [Unknown]
  - Back pain [Unknown]
  - Muscular weakness [Unknown]
  - Drug intolerance [Unknown]
  - Arthralgia [Unknown]
  - Myalgia [Unknown]
  - Synovitis [Unknown]
  - Gait disturbance [Unknown]
